FAERS Safety Report 10467382 (Version 1)
Quarter: 2014Q3

REPORT INFORMATION
  Report Type: Spontaneous
  Country: AR (occurrence: AR)
  Receive Date: 20140922
  Receipt Date: 20140922
  Transmission Date: 20150326
  Serious: Yes (Death)
  Sender: FDA-Public Use
  Company Number: AR-PFIZER INC-2014258591

PATIENT
  Age: 23 Year
  Sex: Female

DRUGS (1)
  1. SUTENT [Suspect]
     Active Substance: SUNITINIB MALATE
     Indication: METASTATIC RENAL CELL CARCINOMA
     Dosage: 50 MG, DAILY CYCLIC (SCHEME 4 WEEKS ON / 2 WEEKS OFF)
     Dates: start: 20140611

REACTIONS (1)
  - Death [Fatal]

NARRATIVE: CASE EVENT DATE: 20140830
